FAERS Safety Report 14485570 (Version 1)
Quarter: 2018Q1

REPORT INFORMATION
  Report Type: Spontaneous
  Country: US (occurrence: US)
  Receive Date: 20180202
  Receipt Date: 20180202
  Transmission Date: 20180509
  Serious: Yes (Other)
  Sender: FDA-Public Use
  Company Number: None

PATIENT
  Age: 26 Year
  Sex: Female
  Weight: 67.5 kg

DRUGS (4)
  1. POLYETHYLENE GLYCOL [Concomitant]
     Active Substance: POLYETHYLENE GLYCOLS
  2. CEFEPIME [Suspect]
     Active Substance: CEFEPIME HYDROCHLORIDE
     Indication: FEBRILE NEUTROPENIA
     Dosage: ?          OTHER FREQUENCY:Q8H;OTHER ROUTE:IV PUSH OVER 5 MINUTES (IN 10 ML SWFI)?
     Dates: start: 20171120, end: 20171214
  3. POTASSIUM CHLORIDE SR CA [Concomitant]
  4. SENNA [Concomitant]
     Active Substance: SENNA LEAF\SENNOSIDES\SENNOSIDES A AND B

REACTIONS (3)
  - Chills [None]
  - Chest discomfort [None]
  - Hypertension [None]

NARRATIVE: CASE EVENT DATE: 20171121
